FAERS Safety Report 25592885 (Version 1)
Quarter: 2025Q3

REPORT INFORMATION
  Report Type: Spontaneous
  Country: US (occurrence: US)
  Receive Date: 20250722
  Receipt Date: 20250722
  Transmission Date: 20251020
  Serious: No
  Sender: SANOFI AVENTIS
  Company Number: US-SANOFI-02593996

PATIENT
  Age: 3 Year
  Sex: Female
  Weight: 13.6 kg

DRUGS (1)
  1. DUPIXENT [Suspect]
     Active Substance: DUPILUMAB
     Indication: Eczema
     Dosage: Q4W

REACTIONS (2)
  - Rebound eczema [Unknown]
  - Product dose omission issue [Unknown]
